FAERS Safety Report 22025684 (Version 1)
Quarter: 2023Q1

REPORT INFORMATION
  Report Type: Spontaneous
  Country: US (occurrence: None)
  Receive Date: 20230223
  Receipt Date: 20230223
  Transmission Date: 20230418
  Serious: No
  Sender: FDA-Public Use
  Company Number: US-ROCHE-3139030

PATIENT
  Sex: Female

DRUGS (7)
  1. XOLAIR [Suspect]
     Active Substance: OMALIZUMAB
     Indication: Product used for unknown indication
     Route: 065
     Dates: start: 20220616
  2. PREDNISONE [Concomitant]
     Active Substance: PREDNISONE
  3. HYDROCORTISONE [Concomitant]
     Active Substance: HYDROCORTISONE
  4. SYNTHROID [Concomitant]
     Active Substance: LEVOTHYROXINE SODIUM
  5. KINERET [Concomitant]
     Active Substance: ANAKINRA
  6. CAMBIA [Concomitant]
     Active Substance: DICLOFENAC POTASSIUM
  7. CELEBREX [Concomitant]
     Active Substance: CELECOXIB

REACTIONS (2)
  - Migraine [Unknown]
  - Dizziness [Unknown]
